FAERS Safety Report 6994088-1 (Version None)
Quarter: 2010Q3

REPORT INFORMATION
  Report Type: 
  Country: None (occurrence: None)
  Receive Date: 20100917
  Receipt Date: 20100331
  Transmission Date: 20110219
  Serious: Yes (Other)
  Sender: FDA-Public Use
  Company Number: US-ASTRAZENECA-2009SE25209

PATIENT
  Age: 63 Year
  Sex: Male

DRUGS (7)
  1. SEROQUEL [Suspect]
     Dosage: 100 MG-200 MG
     Route: 048
     Dates: start: 20030410
  2. TRAZODONE HCL [Concomitant]
     Dates: start: 20030407
  3. DEPAKOTE ER [Concomitant]
     Dates: start: 20060124
  4. TRILAFON [Concomitant]
     Dates: start: 20090601
  5. COGENTIN [Concomitant]
     Route: 048
     Dates: start: 20090601
  6. PLAVIX [Concomitant]
     Dates: start: 20030203
  7. ATENOLOL [Concomitant]
     Dates: start: 20060124

REACTIONS (2)
  - BLOOD GLUCOSE DECREASED [None]
  - DIABETES MELLITUS [None]
